FAERS Safety Report 19035153 (Version 1)
Quarter: 2021Q1

REPORT INFORMATION
  Report Type: Other
  Country: US (occurrence: US)
  Receive Date: 20210320
  Receipt Date: 20210320
  Transmission Date: 20210420
  Serious: No
  Sender: FDA-Public Use
  Company Number: US-ACORDA-ACO_167559_2021

PATIENT
  Sex: Female

DRUGS (4)
  1. INBRIJA [Suspect]
     Active Substance: LEVODOPA
     Indication: ON AND OFF PHENOMENON
  2. INBRIJA [Suspect]
     Active Substance: LEVODOPA
     Indication: PARKINSON^S DISEASE
     Dosage: 84 MILLIGRAM, PRN (42MG 2 CAPSULES AS NEEDED) NOT TO EXCEED 5 DOSES A DAY
     Dates: start: 20210101
  3. SINEMET [Concomitant]
     Active Substance: CARBIDOPA\LEVODOPA
     Dosage: 50/200MGER: 1 PILL @ NIGHT
     Route: 065
  4. SINEMET [Concomitant]
     Active Substance: CARBIDOPA\LEVODOPA
     Indication: PRODUCT USED FOR UNKNOWN INDICATION
     Dosage: 25/100MG: 2 PILL 5X/DAY
     Route: 065

REACTIONS (4)
  - Throat irritation [Unknown]
  - Product residue present [Unknown]
  - Device issue [Unknown]
  - Device use issue [Unknown]
